FAERS Safety Report 9879957 (Version 1)
Quarter: 2014Q1

REPORT INFORMATION
  Report Type: Report from Study
  Country: US (occurrence: US)
  Receive Date: 20140207
  Receipt Date: 20140207
  Transmission Date: 20141002
  Serious: Yes (Other)
  Sender: FDA-Public Use
  Company Number: US-ROCHE-1340419

PATIENT
  Age: 49 Year
  Sex: Female
  Weight: 62.05 kg

DRUGS (6)
  1. AVASTIN [Suspect]
     Indication: LUNG NEOPLASM MALIGNANT
     Route: 042
     Dates: start: 201109
  2. ALLEGRA [Concomitant]
     Indication: HYPERSENSITIVITY
     Route: 048
  3. FLONASE [Concomitant]
     Indication: HYPERSENSITIVITY
     Route: 050
     Dates: start: 20121107, end: 20131107
  4. MUCINEX [Concomitant]
     Indication: NASAL CONGESTION
     Route: 048
  5. COZAAR [Concomitant]
     Indication: BLOOD PRESSURE
     Route: 048
     Dates: start: 20131001
  6. ZOCOR [Concomitant]
     Indication: BLOOD CHOLESTEROL
     Route: 048

REACTIONS (3)
  - Lung neoplasm malignant [Unknown]
  - Pneumonia [Unknown]
  - Infection [Unknown]
